FAERS Safety Report 9844274 (Version 3)
Quarter: 2014Q2

REPORT INFORMATION
  Report Type: Spontaneous
  Country: JP (occurrence: JP)
  Receive Date: 20140127
  Receipt Date: 20140527
  Transmission Date: 20141212
  Serious: Yes (Life-Threatening, Other)
  Sender: FDA-Public Use
  Company Number: JP-009507513-1401JPN010875

PATIENT
  Age: 23 Year
  Sex: Female
  Weight: 48 kg

DRUGS (2)
  1. MARVELON 28 [Suspect]
     Indication: CONTRACEPTION
     Dosage: ONE TABLET ONCE A DAY
     Route: 048
     Dates: start: 20130425, end: 201401
  2. MARVELON 28 [Suspect]
     Indication: MENSTRUATION IRREGULAR

REACTIONS (3)
  - Cerebral haemorrhage [Recovered/Resolved]
  - Superior sagittal sinus thrombosis [Recovered/Resolved]
  - Surgery [Unknown]
